FAERS Safety Report 22660901 (Version 1)
Quarter: 2023Q2

REPORT INFORMATION
  Report Type: Spontaneous
  Country: IT (occurrence: IT)
  Receive Date: 20230630
  Receipt Date: 20230630
  Transmission Date: 20230721
  Serious: Yes (Hospitalization, Other)
  Sender: FDA-Public Use
  Company Number: IT-MINISAL02-918444

PATIENT
  Age: 87 Year
  Sex: Male

DRUGS (2)
  1. METFORMIN [Suspect]
     Active Substance: METFORMIN HYDROCHLORIDE
     Indication: Diabetes mellitus
     Dosage: 1000 MILLIGRAM, 500 MG X 2
     Route: 048
  2. INSULIN LISPRO [Suspect]
     Active Substance: INSULIN LISPRO
     Indication: Diabetes mellitus
     Dosage: 18 INTERNATIONAL UNIT, 4 IU FOR BREAKFAST, 6 IU FOR LUNCH, 8 IU FOR DINNER
     Route: 065

REACTIONS (1)
  - Hypoglycaemia [Recovering/Resolving]

NARRATIVE: CASE EVENT DATE: 20230202
